FAERS Safety Report 9815448 (Version 1)
Quarter: 2014Q1

REPORT INFORMATION
  Report Type: Spontaneous
  Country: US (occurrence: US)
  Receive Date: 20140114
  Receipt Date: 20140114
  Transmission Date: 20141002
  Serious: No
  Sender: FDA-Public Use
  Company Number: US-PFIZER INC-2014010194

PATIENT
  Age: 50 Year
  Sex: Male
  Weight: 73.47 kg

DRUGS (1)
  1. VENLAFAXINE HCL [Suspect]
     Indication: NEURALGIA
     Dosage: 37.5 MG, 1X/DAY
     Route: 048
     Dates: start: 20131218, end: 20131224

REACTIONS (2)
  - Off label use [Unknown]
  - Tinnitus [Not Recovered/Not Resolved]
